FAERS Safety Report 16684108 (Version 1)
Quarter: 2019Q3

REPORT INFORMATION
  Report Type: Spontaneous
  Country: CA (occurrence: CA)
  Receive Date: 20190808
  Receipt Date: 20190808
  Transmission Date: 20191004
  Serious: Yes (Other)
  Sender: FDA-Public Use
  Company Number: CA-SAMSUNG BIOEPIS-SB-2019-21948

PATIENT

DRUGS (1)
  1. INFLIXIMAB [Suspect]
     Active Substance: INFLIXIMAB
     Indication: IRRITABLE BOWEL SYNDROME
     Dosage: UNKNOWN
     Route: 042

REACTIONS (5)
  - Pancytopenia [Unknown]
  - Antinuclear antibody positive [Unknown]
  - Off label use [Unknown]
  - Product use in unapproved indication [Unknown]
  - Transaminases increased [Unknown]
